FAERS Safety Report 16296153 (Version 6)
Quarter: 2020Q1

REPORT INFORMATION
  Report Type: Report from Study
  Country: None (occurrence: JP)
  Receive Date: 20190510
  Receipt Date: 20200317
  Transmission Date: 20200409
  Serious: Yes (Hospitalization)
  Sender: FDA-Public Use
  Company Number: JP-ABBVIE-19S-087-2736728-00

PATIENT
  Age: 71 Year
  Sex: Female
  Weight: 42 kg

DRUGS (8)
  1. ROTIGOTINE [Concomitant]
     Active Substance: ROTIGOTINE
     Indication: PARKINSON^S DISEASE
     Route: 062
     Dates: start: 20191015
  2. ESOMEPRAZOLE MAGNESIUM. [Concomitant]
     Active Substance: ESOMEPRAZOLE MAGNESIUM
     Indication: PRODUCT USED FOR UNKNOWN INDICATION
     Route: 048
     Dates: start: 20191015
  3. DUODOPA [Suspect]
     Active Substance: CARBIDOPA\LEVODOPA
     Dosage: MD: 9 ML?CD: 2.0 ML/HR ? 16 HRS?ED: 1.2 ML/UNIT ? 1
     Route: 050
     Dates: start: 2019
  4. BENFOTIAMINE [Concomitant]
     Active Substance: BENFOTIAMINE
     Indication: PROPHYLAXIS
     Route: 048
     Dates: start: 20190313
  5. CYANOCOBALAMIN. [Concomitant]
     Active Substance: CYANOCOBALAMIN
     Indication: PROPHYLAXIS
     Route: 048
     Dates: start: 20190313
  6. ELDECALCITOL [Concomitant]
     Active Substance: ELDECALCITOL
     Indication: PRODUCT USED FOR UNKNOWN INDICATION
     Route: 048
  7. DUODOPA [Suspect]
     Active Substance: CARBIDOPA\LEVODOPA
     Indication: PARKINSON^S DISEASE
     Route: 050
     Dates: start: 20190312, end: 2019
  8. PYRIDOXINE HYDROCHLORIDE. [Concomitant]
     Active Substance: PYRIDOXINE HYDROCHLORIDE
     Indication: PROPHYLAXIS
     Route: 048
     Dates: start: 20190313

REACTIONS (18)
  - Malaise [Unknown]
  - Hypophagia [Recovering/Resolving]
  - On and off phenomenon [Unknown]
  - Asthenia [Unknown]
  - Nausea [Unknown]
  - Blood iron decreased [Unknown]
  - Back pain [Unknown]
  - Dyskinesia [Unknown]
  - Drug ineffective [Unknown]
  - Gastric ulcer [Unknown]
  - Stress [Unknown]
  - Palpitations [Unknown]
  - Stoma site erythema [Unknown]
  - Stoma site discharge [Unknown]
  - Haematemesis [Unknown]
  - Anaemia [Recovered/Resolved]
  - Chest discomfort [Unknown]
  - Abdominal discomfort [Unknown]

NARRATIVE: CASE EVENT DATE: 2019
